FAERS Safety Report 18908838 (Version 1)
Quarter: 2021Q1

REPORT INFORMATION
  Report Type: Spontaneous
  Country: US (occurrence: US)
  Receive Date: 20210218
  Receipt Date: 20210218
  Transmission Date: 20210420
  Serious: Yes (Other)
  Sender: FDA-Public Use
  Company Number: US-UCBSA-2021002603

PATIENT

DRUGS (2)
  1. KEPPRA [Suspect]
     Active Substance: LEVETIRACETAM
     Indication: PRODUCT USED FOR UNKNOWN INDICATION
     Dosage: 7.5 MILLILITER, 3X/DAY (TID)
  2. VIMPAT [Suspect]
     Active Substance: LACOSAMIDE
     Indication: PRODUCT USED FOR UNKNOWN INDICATION
     Dosage: 5 MILLILITER, 2X/DAY (BID)
     Dates: start: 2017

REACTIONS (6)
  - Malabsorption [Unknown]
  - Ehlers-Danlos syndrome [Unknown]
  - Hypoglycaemia [Unknown]
  - Seizure [Recovered/Resolved]
  - Hypotension [Unknown]
  - Product use issue [Unknown]

NARRATIVE: CASE EVENT DATE: 2017
